FAERS Safety Report 19188428 (Version 1)
Quarter: 2021Q2

REPORT INFORMATION
  Report Type: Report from Study
  Country: None (occurrence: US)
  Receive Date: 20210427
  Receipt Date: 20210427
  Transmission Date: 20210717
  Serious: Yes (Hospitalization)
  Sender: FDA-Public Use
  Company Number: US-ABBVIE-21K-163-3870253-00

PATIENT
  Age: 21 Year
  Sex: Female

DRUGS (1)
  1. HUMIRA [Suspect]
     Active Substance: ADALIMUMAB
     Indication: CROHN^S DISEASE
     Dosage: CITRATE FREE
     Route: 058

REACTIONS (12)
  - Anosmia [Unknown]
  - Pleurisy [Unknown]
  - Oropharyngeal pain [Recovered/Resolved]
  - Ageusia [Unknown]
  - Dehydration [Unknown]
  - Rib fracture [Unknown]
  - SARS-CoV-2 test positive [Not Recovered/Not Resolved]
  - Exposure to SARS-CoV-2 [Unknown]
  - Pyrexia [Not Recovered/Not Resolved]
  - Aphonia [Recovered/Resolved]
  - Cough [Unknown]
  - Suspected COVID-19 [Unknown]

NARRATIVE: CASE EVENT DATE: 20210326
